FAERS Safety Report 13454895 (Version 2)
Quarter: 2017Q3

REPORT INFORMATION
  Report Type: Spontaneous
  Country: JP (occurrence: JP)
  Receive Date: 20170419
  Receipt Date: 20170707
  Transmission Date: 20171127
  Serious: Yes (Other)
  Sender: FDA-Public Use
  Company Number: PHJP2017JP012729

PATIENT
  Sex: Female

DRUGS (1)
  1. AFINITOR [Suspect]
     Active Substance: EVEROLIMUS
     Indication: RENAL CELL CARCINOMA
     Dosage: 10 MG, QD
     Route: 048
     Dates: start: 201606, end: 201703

REACTIONS (4)
  - Brain oedema [Recovering/Resolving]
  - Malignant neoplasm progression [Not Recovered/Not Resolved]
  - Adrenal insufficiency [Recovering/Resolving]
  - Renal cell carcinoma [Not Recovered/Not Resolved]

NARRATIVE: CASE EVENT DATE: 201703
